FAERS Safety Report 13455250 (Version 4)
Quarter: 2017Q2

REPORT INFORMATION
  Report Type: Spontaneous
  Country: US (occurrence: US)
  Receive Date: 20170419
  Receipt Date: 20170621
  Transmission Date: 20170830
  Serious: No
  Sender: FDA-Public Use
  Company Number: US-PFIZER INC-2017011780

PATIENT
  Age: 86 Year
  Sex: Female
  Weight: 67 kg

DRUGS (23)
  1. IBRANCE [Suspect]
     Active Substance: PALBOCICLIB
     Indication: BREAST CANCER METASTATIC
     Dosage: 75 MG, CYCLIC (ONE TABLET DAILY W/ BREAKFAST 3 WEEKS ON, 1 WEEK OFF)
     Route: 048
     Dates: start: 201611, end: 201704
  2. VITAMIN D3 [Concomitant]
     Active Substance: CHOLECALCIFEROL
     Dosage: 2000 IU, 1X/DAY
     Route: 048
  3. ALLEGRA [Concomitant]
     Active Substance: FEXOFENADINE HYDROCHLORIDE
     Dosage: UNK UNK, DAILY
     Route: 048
  4. VITAMIN B-6 [Concomitant]
     Active Substance: PYRIDOXINE
     Dosage: 50 MG, DAILY
     Route: 048
  5. ULTRAM [Concomitant]
     Active Substance: TRAMADOL HYDROCHLORIDE
     Indication: PAIN
     Dosage: 50 MG, AS NEEDED (EVERY 6 HOURS AS NEEDED FOR PAIN)
     Route: 048
  6. CALCIUM [Concomitant]
     Active Substance: CALCIUM
     Dosage: 1200 IU, 1X/DAY
     Route: 048
  7. MARIJUANA [Concomitant]
     Active Substance: CANNABIS SATIVA SUBSP. INDICA TOP
     Dosage: UNK
  8. CALCIUM CARBONATE. [Concomitant]
     Active Substance: CALCIUM CARBONATE
     Dosage: 1296 MG, DAILY
     Route: 048
  9. VITAMIN B12 [Concomitant]
     Active Substance: CYANOCOBALAMIN
     Dosage: 1000 UG, DAILY
     Route: 048
  10. LASIX [Concomitant]
     Active Substance: FUROSEMIDE
     Dosage: 20 MG, DAILY
     Route: 048
  11. COUMADIN [Concomitant]
     Active Substance: WARFARIN SODIUM
     Dosage: 3 MG, DAILY (3 MG ALTERNATING WITH 6 MG)
  12. MICARDIS [Concomitant]
     Active Substance: TELMISARTAN
     Dosage: 20 MG, DAILY
     Route: 048
  13. IBRANCE [Suspect]
     Active Substance: PALBOCICLIB
     Dosage: 75 MG, CYCLIC (WEEKS AND THEN OFF A WEEK)
     Route: 048
     Dates: start: 2016
  14. IBRANCE [Suspect]
     Active Substance: PALBOCICLIB
     Dosage: 100 MG, CYCLIC (3 WEEKS ON THEN 1 WEEK OFF)
     Dates: start: 20170609
  15. TYLENOL [Concomitant]
     Active Substance: ACETAMINOPHEN
     Indication: PAIN
     Dosage: 500 MG, AS NEEDED (TAKE 500 MG BY MOUTH EVERY 6 HOURS AS NEEDED FOR PAIN. OTC)
     Route: 048
  16. LIPITOR [Concomitant]
     Active Substance: ATORVASTATIN CALCIUM
     Indication: BLOOD CHOLESTEROL
     Dosage: 80 MG, 1X/DAY (BY MOUTH NIGHTLY)
     Route: 048
  17. COREG [Concomitant]
     Active Substance: CARVEDILOL
     Indication: HYPERTENSION
     Dosage: 12.5 MG, 2X/DAY (WITH BREAKFAST AND DINNER)
     Route: 048
  18. LASIX [Concomitant]
     Active Substance: FUROSEMIDE
     Dosage: 40 MG, DAILY
     Route: 048
  19. LIDODERM [Concomitant]
     Active Substance: LIDOCAINE
     Dosage: 1 DF, DAILY (APPLY FOR 12 HOURS, THEN REMOVE FOR 12 HOURS.)
     Route: 062
  20. VITAMIN D3 [Concomitant]
     Active Substance: CHOLECALCIFEROL
     Dosage: 1000 IU, DAILY
     Route: 048
  21. COUMADIN [Concomitant]
     Active Substance: WARFARIN SODIUM
     Indication: ATRIAL FIBRILLATION
     Dosage: 3 MG FIVE TIMES A WEEK AND 6 MG TWO TIMES A WEEK
  22. FEMARA [Concomitant]
     Active Substance: LETROZOLE
     Indication: BREAST CANCER
     Dosage: 2.5 MG, DAILY
     Route: 048
     Dates: start: 2016
  23. VEETIDS [Concomitant]
     Active Substance: PENICILLIN V POTASSIUM
     Dosage: 500 MG, UNK

REACTIONS (7)
  - Alopecia [Not Recovered/Not Resolved]
  - Tooth infection [Recovered/Resolved]
  - Toothache [Recovering/Resolving]
  - White blood cell count decreased [Unknown]
  - Sensitivity of teeth [Recovering/Resolving]
  - Condition aggravated [Not Recovered/Not Resolved]
  - Dental pulp disorder [Unknown]

NARRATIVE: CASE EVENT DATE: 201612
